FAERS Safety Report 5508337-X (Version None)
Quarter: 2007Q4

REPORT INFORMATION
  Report Type: 
  Country: None (occurrence: None)
  Receive Date: 20071106
  Receipt Date: 20071025
  Transmission Date: 20080405
  Serious: Yes (Hospitalization, Other)
  Sender: FDA-Public Use
  Company Number: HQWYE538525OCT06

PATIENT
  Age: 25 Year
  Sex: Male

DRUGS (2)
  1. VENLAFAXIINE HCL [Suspect]
     Indication: DEPRESSION
  2. HALOPERIDOL [Interacting]
     Indication: AGITATION
     Dosage: DOSE AND FREQUENCY UNSPECIFIED

REACTIONS (5)
  - COMPARTMENT SYNDROME [None]
  - CONDITION AGGRAVATED [None]
  - DRUG ABUSE [None]
  - DRUG INTERACTION [None]
  - RHABDOMYOLYSIS [None]
